FAERS Safety Report 5127501-5 (Version None)
Quarter: 2006Q4

REPORT INFORMATION
  Report Type: 
  Country: None (occurrence: None)
  Receive Date: 20061010
  Receipt Date: 20060926
  Transmission Date: 20070319
  Serious: Yes (Hospitalization)
  Sender: FDA-Public Use
  Company Number: 2006116225

PATIENT
  Age: 74 Year
  Sex: Female

DRUGS (9)
  1. DETRUSITOL SR               (TOLTERODINE) [Suspect]
     Indication: NOCTURIA
     Dosage: 4 MG, ORAL
     Route: 048
     Dates: start: 20060823, end: 20060910
  2. DETRUSITOL SR               (TOLTERODINE) [Suspect]
     Indication: POLLAKIURIA
     Dosage: 4 MG, ORAL
     Route: 048
     Dates: start: 20060823, end: 20060910
  3. DILTIAZEM HYDROCHLORIDE [Concomitant]
  4. LANSOPRAZOLE [Concomitant]
  5. MAGNESIUM OXIDE               (MAGNESIUM OXIDE) [Concomitant]
  6. BROTIZOLAM              (BROTIZOLAM) [Concomitant]
  7. MEILAX                             (ETHYL LOFLAZEPATE) [Concomitant]
  8. DEPAS                    (ETIZOLAM) [Concomitant]
  9. SHAKUYAKU-KANZO-TO                         (LIQUORICE, PEONY) [Concomitant]

REACTIONS (3)
  - HYPERTHERMIA [None]
  - PYELONEPHRITIS [None]
  - URINARY RETENTION [None]
